FAERS Safety Report 7115754-3 (Version None)
Quarter: 2010Q4

REPORT INFORMATION
  Report Type: 
  Country: None (occurrence: None)
  Receive Date: 20101122
  Receipt Date: 20101112
  Transmission Date: 20110411
  Serious: Yes (Other)
  Sender: FDA-Public Use
  Company Number: US-AMGEN-QUU435203

PATIENT

DRUGS (3)
  1. NPLATE [Suspect]
     Indication: IDIOPATHIC THROMBOCYTOPENIC PURPURA
     Dosage: 65 A?G, QWK
     Route: 058
     Dates: start: 20100106
  2. PREDNISONE [Concomitant]
     Dosage: 60 MG, QD
     Route: 048
     Dates: start: 20100914
  3. IMMU-G [Concomitant]
     Dosage: 1 A?G/KG, UNK
     Route: 042
     Dates: start: 20100521

REACTIONS (5)
  - BONE PAIN [None]
  - FATIGUE [None]
  - LEUKOCYTOSIS [None]
  - THERAPEUTIC RESPONSE DECREASED [None]
  - THROMBOCYTOSIS [None]
